FAERS Safety Report 5670782-X (Version None)
Quarter: 2008Q1

REPORT INFORMATION
  Report Type: 
  Country: None (occurrence: None)
  Receive Date: 20080318
  Receipt Date: 20080311
  Transmission Date: 20080703
  Serious: Yes (Life-Threatening, Other)
  Sender: FDA-Public Use
  Company Number: DE-ABBOTT-07P-062-0426809-00

PATIENT
  Sex: Male

DRUGS (1)
  1. TEVETEN MONO [Suspect]
     Indication: DRUG USE FOR UNKNOWN INDICATION

REACTIONS (6)
  - COLD SWEAT [None]
  - DIZZINESS [None]
  - DYSSTASIA [None]
  - MALAISE [None]
  - RETCHING [None]
  - VIRAL INFECTION [None]
